FAERS Safety Report 19111174 (Version 2)
Quarter: 2021Q2

REPORT INFORMATION
  Report Type: Report from Study
  Country: US (occurrence: US)
  Receive Date: 20210409
  Receipt Date: 20210429
  Transmission Date: 20210717
  Serious: Yes (Death)
  Sender: FDA-Public Use
  Company Number: US-TEVA-2021-US-1897926

PATIENT
  Age: 67 Year
  Sex: Female

DRUGS (1)
  1. AUSTEDO [Suspect]
     Active Substance: DEUTETRABENAZINE
     Indication: TARDIVE DYSKINESIA
     Route: 048
     Dates: start: 20210217, end: 20210311

REACTIONS (3)
  - Myocardial infarction [Fatal]
  - Eyelid ptosis [Unknown]
  - COVID-19 [Unknown]

NARRATIVE: CASE EVENT DATE: 202103
